FAERS Safety Report 11062054 (Version 2)
Quarter: 2015Q3

REPORT INFORMATION
  Report Type: Report from Study
  Country: US (occurrence: US)
  Receive Date: 20150424
  Receipt Date: 20150713
  Transmission Date: 20151125
  Serious: Yes (Hospitalization, Other)
  Sender: FDA-Public Use
  Company Number: US-BIOGENIDEC-2015BI052230

PATIENT
  Age: 47 Year
  Sex: Female
  Weight: 97 kg

DRUGS (10)
  1. ASPIRIN. [Concomitant]
     Active Substance: ASPIRIN
     Route: 048
  2. LEVOTHROID [Concomitant]
     Active Substance: LEVOTHYROXINE SODIUM
     Route: 048
  3. PLEGRIDY [Suspect]
     Active Substance: PEGINTERFERON BETA-1A
     Indication: MULTIPLE SCLEROSIS
     Route: 058
     Dates: start: 20150305
  4. AMPYRA [Concomitant]
     Active Substance: DALFAMPRIDINE
     Route: 048
  5. PLEGRIDY [Suspect]
     Active Substance: PEGINTERFERON BETA-1A
     Indication: MULTIPLE SCLEROSIS
     Route: 058
     Dates: start: 20150205
  6. BACLOFEN. [Concomitant]
     Active Substance: BACLOFEN
     Route: 048
     Dates: start: 20150520
  7. LYRICA [Concomitant]
     Active Substance: PREGABALIN
     Route: 048
  8. PLEGRIDY [Suspect]
     Active Substance: PEGINTERFERON BETA-1A
     Indication: MULTIPLE SCLEROSIS
     Route: 058
     Dates: start: 20150204
  9. ZOLOFT [Concomitant]
     Active Substance: SERTRALINE HYDROCHLORIDE
     Route: 048
  10. NAPROSYN [Concomitant]
     Active Substance: NAPROXEN
     Route: 048

REACTIONS (14)
  - General symptom [Unknown]
  - Drug intolerance [Unknown]
  - Arthropathy [Unknown]
  - Infection [Unknown]
  - Pain [Not Recovered/Not Resolved]
  - Injection site erythema [Not Recovered/Not Resolved]
  - Pneumonia [Recovered/Resolved]
  - Incontinence [Not Recovered/Not Resolved]
  - Blood pressure increased [Unknown]
  - Pyrexia [Unknown]
  - Injection site pruritus [Not Recovered/Not Resolved]
  - Neurostimulator removal [Unknown]
  - Fatigue [Not Recovered/Not Resolved]
  - Injection site reaction [Unknown]

NARRATIVE: CASE EVENT DATE: 201504
